FAERS Safety Report 8793938 (Version 1)
Quarter: 2012Q4

REPORT INFORMATION
  Report Type: Report from Study
  Country: TR (occurrence: TR)
  Receive Date: 20120917
  Receipt Date: 20120917
  Transmission Date: 20130627
  Serious: Yes (Other)
  Sender: FDA-Public Use
  Company Number: TR-BAYER-2012-094278

PATIENT
  Age: 33 Year
  Sex: Female

DRUGS (4)
  1. DACARBAZINE [Suspect]
     Indication: HODGKIN^S DISEASE
  2. ADRIAMYCIN [Suspect]
     Indication: HODGKIN^S DISEASE
  3. VINBLASTINE [Suspect]
     Indication: HODGKIN^S DISEASE
  4. BLEOMYCIN [Suspect]
     Indication: HODGKIN^S DISEASE

REACTIONS (1)
  - Foetal death [None]
